FAERS Safety Report 18402043 (Version 3)
Quarter: 2021Q1

REPORT INFORMATION
  Report Type: Spontaneous
  Country: IT (occurrence: IT)
  Receive Date: 20201020
  Receipt Date: 20210329
  Transmission Date: 20210419
  Serious: Yes (Life-Threatening, Hospitalization, Other)
  Sender: FDA-Public Use
  Company Number: IT-AUROBINDO-AUR-APL-2020-050247

PATIENT
  Sex: Female

DRUGS (7)
  1. PACLITAXEL CONCENTRATE FOR SOLUTION FOR INFUSION [Suspect]
     Active Substance: PACLITAXEL
     Indication: TONSIL CANCER
     Dosage: UNK, CYCLICAL
     Route: 065
     Dates: start: 201711
  2. CISPLATIN. [Suspect]
     Active Substance: CISPLATIN
     Indication: TONSIL CANCER
     Dosage: UNK, CYCLICAL
     Route: 065
     Dates: start: 201711
  3. PACLITAXEL CONCENTRATE FOR SOLUTION FOR INFUSION [Suspect]
     Active Substance: PACLITAXEL
     Indication: NON-SMALL CELL LUNG CANCER
  4. CETUXIMAB. [Suspect]
     Active Substance: CETUXIMAB
     Indication: TONSIL CANCER
     Dosage: UNK UNK, CYCLICAL
     Route: 065
     Dates: start: 201711
  5. CETUXIMAB. [Suspect]
     Active Substance: CETUXIMAB
     Indication: NON-SMALL CELL LUNG CANCER
  6. CISPLATIN. [Suspect]
     Active Substance: CISPLATIN
     Indication: NON-SMALL CELL LUNG CANCER
  7. LORAZEPAM. [Suspect]
     Active Substance: LORAZEPAM
     Indication: MYOCLONUS
     Dosage: UNK
     Route: 065

REACTIONS (6)
  - Sepsis [Recovered/Resolved]
  - Toxicity to various agents [Recovered/Resolved]
  - Condition aggravated [Unknown]
  - Off label use [Unknown]
  - Pancytopenia [Recovered/Resolved]
  - Drug ineffective for unapproved indication [Unknown]
